FAERS Safety Report 15644463 (Version 1)
Quarter: 2018Q4

REPORT INFORMATION
  Report Type: Report from Study
  Country: DE (occurrence: DE)
  Receive Date: 20181121
  Receipt Date: 20181121
  Transmission Date: 20190205
  Serious: Yes (Hospitalization, Other)
  Sender: FDA-Public Use
  Company Number: DE-SA-2017SA111345

PATIENT
  Age: 36 Year
  Sex: Female
  Weight: 70 kg

DRUGS (8)
  1. ERGOCALCIFEROL. [Concomitant]
     Active Substance: ERGOCALCIFEROL
     Indication: VITAMIN D DEFICIENCY
     Dosage: 200000 UNK, UNK
     Route: 048
  2. FERRO-SANOL DUODENAL [Concomitant]
     Active Substance: FERROUS GLYCINE SULFATE
     Indication: IRON DEFICIENCY
     Dosage: UNK, UNK
     Route: 048
  3. FOLIC ACID. [Concomitant]
     Active Substance: FOLIC ACID
     Dosage: 5 MG,QD
     Route: 048
  4. ALEMTUZUMAB [Suspect]
     Active Substance: ALEMTUZUMAB
     Indication: MULTIPLE SCLEROSIS
     Dosage: 12 MG,UNK
     Route: 041
     Dates: start: 20151012, end: 20151016
  5. PANTOPRAZOLE [Concomitant]
     Active Substance: PANTOPRAZOLE
     Dosage: 40 MG,QD
     Route: 048
  6. ALEMTUZUMAB [Suspect]
     Active Substance: ALEMTUZUMAB
     Dosage: 12 MG,UNK
     Route: 041
     Dates: start: 20161007, end: 20161013
  7. PROPRANOLOL [Concomitant]
     Active Substance: PROPRANOLOL HYDROCHLORIDE
     Indication: HYPERTENSION
     Dosage: 40 MG,TID
     Route: 048
  8. PROPRANOLOL [Concomitant]
     Active Substance: PROPRANOLOL HYDROCHLORIDE
     Dosage: 20 MG,UNK
     Route: 048
     Dates: start: 20170601, end: 20170724

REACTIONS (12)
  - Hyperthyroidism [Recovering/Resolving]
  - Anxiety [Recovering/Resolving]
  - Alopecia [Unknown]
  - Heart rate irregular [Unknown]
  - Iron deficiency [Not Recovered/Not Resolved]
  - Hyperhidrosis [Unknown]
  - Hypoaesthesia [Unknown]
  - Multiple sclerosis relapse [Not Recovered/Not Resolved]
  - Exposure during pregnancy [Not Recovered/Not Resolved]
  - Herpes zoster [Not Recovered/Not Resolved]
  - Palpitations [Recovering/Resolving]
  - Paraesthesia [Recovering/Resolving]

NARRATIVE: CASE EVENT DATE: 20170530
